FAERS Safety Report 6113214-X (Version None)
Quarter: 2009Q1

REPORT INFORMATION
  Report Type: 
  Country: None (occurrence: None)
  Receive Date: 20090312
  Receipt Date: 20090302
  Transmission Date: 20090719
  Serious: Yes (Other)
  Sender: FDA-Public Use
  Company Number: US-PFIZER INC-2009177996

PATIENT

DRUGS (1)
  1. LIPITOR [Suspect]

REACTIONS (2)
  - CARDITIS [None]
  - PNEUMONITIS [None]
